FAERS Safety Report 8991098 (Version 2)
Quarter: 2013Q1

REPORT INFORMATION
  Report Type: Spontaneous
  Country: US (occurrence: None)
  Receive Date: 20121220
  Receipt Date: 20121231
  Transmission Date: 20140127
  Serious: Yes (Hospitalization)
  Sender: FDA-Public Use
  Company Number: JPI-P-027127

PATIENT
  Age: 34 Year
  Sex: Male

DRUGS (1)
  1. XYREM (500 MILLIGRAM/MILLILITERS, SOLUTION) (SODIUM OXYBATE) [Suspect]
     Indication: HYPERSOMNIA
     Dosage: 5 GM (2.5 GM, 2 IN 1 D), ORAL
     Route: 048
     Dates: start: 20121207, end: 20121208

REACTIONS (1)
  - Intervertebral disc disorder [None]
